FAERS Safety Report 19866318 (Version 1)
Quarter: 2021Q3

REPORT INFORMATION
  Report Type: Other
  Country: DE (occurrence: DE)
  Receive Date: 20210922
  Receipt Date: 20210922
  Transmission Date: 20211014
  Serious: Yes (Hospitalization)
  Sender: FDA-Public Use
  Company Number: DE-MACLEODS PHARMA UK LTD-MAC2021032720

PATIENT

DRUGS (24)
  1. OXYCODONE [Suspect]
     Active Substance: OXYCODONE
     Dosage: 20 MILLIGRAM, BID
     Route: 065
     Dates: end: 20210513
  2. MIRTAZAPIN [Concomitant]
     Active Substance: MIRTAZAPINE
     Indication: PRODUCT USED FOR UNKNOWN INDICATION
     Dosage: 7.5 MILLIGRAM
     Route: 065
  3. PREGABALIN. [Concomitant]
     Active Substance: PREGABALIN
     Dosage: 600 MILLIGRAM
     Route: 065
  4. NALOXON [Suspect]
     Active Substance: NALOXONE HYDROCHLORIDE
     Indication: PRODUCT USED FOR UNKNOWN INDICATION
     Dosage: 5 MILLIGRAM, BID, TOGETHER WITH OXYCODON
     Route: 065
     Dates: end: 20210513
  5. OCREVUS [Suspect]
     Active Substance: OCRELIZUMAB
     Dosage: 300 MILLIGRAM, INFUSION, SOLUTION
     Route: 042
     Dates: start: 20200220
  6. OCREVUS [Suspect]
     Active Substance: OCRELIZUMAB
     Dosage: 600 MILLIGRAM (168 DAYS, 2X 10 MILLILITRES, INFUSION, SOLUTION)
     Route: 042
     Dates: start: 20200813
  7. CORTISONE [Suspect]
     Active Substance: CORTISONE
     Indication: PRODUCT USED FOR UNKNOWN INDICATION
     Dosage: UNK
     Route: 065
  8. AMITRIPTYLIN [Concomitant]
     Active Substance: AMITRIPTYLINE
     Dosage: 50 MILLIGRAM, QD (0?0?1)
     Route: 065
  9. PREGABALIN. [Concomitant]
     Active Substance: PREGABALIN
     Indication: PAIN
     Dosage: 100 MILLIGRAM, TID (2?2?2)
     Route: 065
  10. PREGABALIN. [Concomitant]
     Active Substance: PREGABALIN
     Dosage: 600 MILLIGRAM, START DATE: 2019
     Route: 048
  11. COMIRNATY [Suspect]
     Active Substance: TOZINAMERAN
     Indication: COVID-19 IMMUNISATION
     Dosage: UNK
     Route: 065
     Dates: start: 20210428
  12. COMIRNATY [Suspect]
     Active Substance: TOZINAMERAN
     Dosage: UNK
     Route: 065
     Dates: start: 20210528
  13. OCREVUS [Suspect]
     Active Substance: OCRELIZUMAB
     Indication: SECONDARY PROGRESSIVE MULTIPLE SCLEROSIS
     Dosage: 300 MILLIGRAM (PER 14 DAYS, SOLUTION FOR INFUSION)
     Route: 042
     Dates: start: 20200206
  14. PARACETAMOL [Concomitant]
     Active Substance: ACETAMINOPHEN
     Indication: PRODUCT USED FOR UNKNOWN INDICATION
     Dosage: UNK, UP TO 3 TIMES PER DAY
     Route: 065
  15. AMITRIPTYLIN [Concomitant]
     Active Substance: AMITRIPTYLINE
     Dosage: 25 MILLIGRAM, QD (0?0?1)
     Route: 065
  16. PREGABALIN. [Concomitant]
     Active Substance: PREGABALIN
     Dosage: 200 MILLIGRAM, 0.33 DAY
     Route: 065
  17. JUBRELE [Concomitant]
     Active Substance: DESOGESTREL
     Indication: PRODUCT USED FOR UNKNOWN INDICATION
     Dosage: UNK
     Route: 065
  18. PANTOPRAZOLE SODIUM. [Suspect]
     Active Substance: PANTOPRAZOLE SODIUM
     Indication: PRODUCT USED FOR UNKNOWN INDICATION
     Dosage: 20 MILLIGRAM
     Route: 065
  19. OXYCODONE [Suspect]
     Active Substance: OXYCODONE
     Indication: PAIN
     Dosage: 10 MILLIGRAM, BID, TOGETHER WITH NALOXON
     Route: 065
  20. OCREVUS [Suspect]
     Active Substance: OCRELIZUMAB
     Dosage: 600 MILLIGRAM (PER 168 DAYS)
     Route: 042
     Dates: start: 20210715
  21. SATIVEX [Suspect]
     Active Substance: NABIXIMOLS
     Indication: PRODUCT USED FOR UNKNOWN INDICATION
     Dosage: 2 DOSAGE FORM, 0.16 DAYS, 2 PUFFS EACH
     Route: 065
  22. DULOXETINE. [Concomitant]
     Active Substance: DULOXETINE
     Indication: PRODUCT USED FOR UNKNOWN INDICATION
     Dosage: 30 MILLIGRAM, BID (1?0?1)
     Route: 065
  23. MOVICOL [Concomitant]
     Active Substance: POLYETHYLENE GLYCOL 3350\POTASSIUM CHLORIDE\SODIUM BICARBONATE\SODIUM CHLORIDE
     Indication: PRODUCT USED FOR UNKNOWN INDICATION
     Dosage: UNK, QD (1?0?0)
     Route: 065
  24. AMITRIPTYLIN [Concomitant]
     Active Substance: AMITRIPTYLINE
     Indication: PAIN
     Dosage: 25 MILLIGRAM, QD, START DATE: 2019
     Route: 048

REACTIONS (50)
  - Musculoskeletal stiffness [Recovered/Resolved]
  - Sensory disturbance [Not Recovered/Not Resolved]
  - Feeling cold [Recovered/Resolved]
  - Urinary incontinence [Recovered/Resolved]
  - Vomiting [Recovered/Resolved]
  - Fatigue [Recovered/Resolved]
  - Arthralgia [Recovering/Resolving]
  - Fatigue [Recovered/Resolved]
  - Coordination abnormal [Recovered/Resolved]
  - Odynophagia [Recovering/Resolving]
  - Cognitive disorder [Recovered/Resolved]
  - Fall [Unknown]
  - Speech disorder [Recovered/Resolved]
  - Loss of consciousness [Unknown]
  - Head discomfort [Recovered/Resolved]
  - Muscle spasms [Recovering/Resolving]
  - Alopecia [Recovering/Resolving]
  - Menstruation irregular [Unknown]
  - Joint range of motion decreased [Recovered/Resolved]
  - Painful respiration [Recovered/Resolved]
  - Dry skin [Not Recovered/Not Resolved]
  - Vaginal discharge [Unknown]
  - Hyperacusis [Recovered/Resolved]
  - Asthenia [Recovered/Resolved]
  - Irritability [Recovering/Resolving]
  - Chills [Recovered/Resolved]
  - Fatigue [Recovered/Resolved]
  - Constipation [Recovered/Resolved]
  - Back pain [Recovering/Resolving]
  - Dysphagia [Recovered/Resolved]
  - Dyskinesia [Recovered/Resolved]
  - Photophobia [Recovered/Resolved]
  - Dyspnoea [Recovered/Resolved]
  - Muscular weakness [Recovered/Resolved]
  - Headache [Not Recovered/Not Resolved]
  - Off label use [Unknown]
  - Multiple sclerosis relapse [Recovered/Resolved]
  - Pain in extremity [Not Recovered/Not Resolved]
  - Tongue movement disturbance [Recovering/Resolving]
  - Tooth injury [Not Recovered/Not Resolved]
  - Mood swings [Recovered/Resolved]
  - Ocular discomfort [Recovering/Resolving]
  - Pain [Recovering/Resolving]
  - Fatigue [Recovered/Resolved]
  - Fungal skin infection [Recovered/Resolved]
  - Anal incontinence [Recovered/Resolved]
  - Memory impairment [Unknown]
  - Eye pain [Recovering/Resolving]
  - Chills [Recovered/Resolved]
  - Muscle spasticity [Recovered/Resolved]

NARRATIVE: CASE EVENT DATE: 20200206
